FAERS Safety Report 4679057-9 (Version None)
Quarter: 2005Q2

REPORT INFORMATION
  Report Type: 
  Country: None (occurrence: None)
  Receive Date: 20050527
  Receipt Date: 20050516
  Transmission Date: 20051028
  Serious: Yes (Hospitalization)
  Sender: FDA-Public Use
  Company Number: 2005BI006516

PATIENT
  Age: 54 Year
  Sex: Female

DRUGS (4)
  1. AVONEX [Suspect]
     Indication: MULTIPLE SCLEROSIS
     Dosage: 30 UG;QW; IM
     Route: 030
     Dates: start: 20050321, end: 20050321
  2. DETROL LA [Concomitant]
  3. PREVACID [Concomitant]
  4. PREMARIN [Concomitant]

REACTIONS (2)
  - DYSTONIA [None]
  - GAZE PALSY [None]
